FAERS Safety Report 14946531 (Version 2)
Quarter: 2018Q2

REPORT INFORMATION
  Report Type: Spontaneous
  Country: IT (occurrence: IT)
  Receive Date: 20180529
  Receipt Date: 20180607
  Transmission Date: 20180711
  Serious: Yes (Other)
  Sender: FDA-Public Use
  Company Number: IT-PFIZER INC-2018212033

PATIENT
  Age: 80 Year

DRUGS (1)
  1. AMPICILLIN SODIUM. [Suspect]
     Active Substance: AMPICILLIN SODIUM
     Indication: ENDOCARDITIS ENTEROCOCCAL
     Dosage: UNK

REACTIONS (2)
  - Endocarditis enterococcal [Unknown]
  - Disease recurrence [Unknown]
